FAERS Safety Report 17180631 (Version 1)
Quarter: 2019Q4

REPORT INFORMATION
  Report Type: Report from Study
  Country: US (occurrence: US)
  Receive Date: 20191219
  Receipt Date: 20191219
  Transmission Date: 20200122
  Serious: Yes (Death, Hospitalization, Other)
  Sender: FDA-Public Use
  Company Number: US-BAUSCH-BL-2019-065043

PATIENT
  Sex: Male

DRUGS (1)
  1. XIFAXAN [Suspect]
     Active Substance: RIFAXIMIN
     Indication: HEPATIC ENCEPHALOPATHY
     Dosage: SOMETIME IN AUG/2019, WHILE IN THE HOSPITAL
     Route: 048
     Dates: start: 201908

REACTIONS (6)
  - Anaemia [Unknown]
  - Renal injury [Unknown]
  - Cerebral disorder [Unknown]
  - Heart injury [Unknown]
  - Hepatic steatosis [Fatal]
  - Ammonia increased [Unknown]

NARRATIVE: CASE EVENT DATE: 2019
